FAERS Safety Report 8058193-3 (Version None)
Quarter: 2012Q1

REPORT INFORMATION
  Report Type: 
  Country: None (occurrence: None)
  Receive Date: 20120112
  Receipt Date: 20101221
  Transmission Date: 20120608
  Serious: No
  Sender: FDA-Public Use
  Company Number: PHHY2010CH87731

PATIENT
  Age: 48 Year
  Sex: Female
  Weight: 51 kg

DRUGS (11)
  1. METAMIZOLE (METAMIZOLE) [Concomitant]
  2. CITALOPRAM HYDROBROMIDE [Suspect]
     Dosage: 20 MG PER DAY,ORAL
     Route: 048
     Dates: start: 20080101
  3. TIZANIDINE HYDROCHLORIDE [Suspect]
     Dosage: 12 MG (2 X 6 MG PER DAY) ORAL; 06 MG DAILY; ORAL
     Route: 048
     Dates: start: 20080101
  4. TRANXILIUM (CLORAZEPATE DISPOTASSIUM) [Concomitant]
  5. ACETAMINOPHEN [Concomitant]
  6. LYRICA [Suspect]
     Dosage: 300 MG (2 X 150 MG PER DAY), ORAL
     Route: 048
     Dates: start: 20101106
  7. BULBOID (GLYCEROL) [Concomitant]
  8. IMPORTAL (LACTITOL) [Concomitant]
  9. OXYCODONE HCL [Suspect]
     Dosage: 10 MG (2 X 5 MG PER DAY) ORAL
     Route: 048
     Dates: start: 20101201, end: 20101203
  10. NEXIUM [Concomitant]
  11. FOLIC ACID [Concomitant]

REACTIONS (2)
  - SINUS BRADYCARDIA [None]
  - BLOOD PRESSURE DECREASED [None]
